FAERS Safety Report 5070344-1 (Version None)
Quarter: 2006Q3

REPORT INFORMATION
  Report Type: 
  Country: None (occurrence: None)
  Receive Date: 20060731
  Receipt Date: 20060718
  Transmission Date: 20061208
  Serious: Yes (Hospitalization)
  Sender: FDA-Public Use
  Company Number: 2006000055

PATIENT
  Age: 66 Year
  Sex: Male

DRUGS (14)
  1. SUTENT [Suspect]
     Indication: RENAL CELL CARCINOMA STAGE UNSPECIFIED
     Dosage: 50 MG (50 MG, 1 IN 1 D) ORAL
     Route: 048
     Dates: start: 20051213, end: 20060331
  2. ATORVASTATIN CALCIUM [Concomitant]
  3. LANSOPRAZOLE [Concomitant]
  4. DOMPERIDONE [Concomitant]
  5. PIROXICAM [Concomitant]
  6. DOTHIEPIN HYDROCHLORIDE [Concomitant]
  7. ACETYLSALICYLIC ACID SRT [Concomitant]
  8. CO-CODAMOL (CODEINE PHOSPHATE, PARACETAMOL) [Concomitant]
  9. TRAMADOL HCL [Concomitant]
  10. AMLDIPINE [Concomitant]
  11. ISOSORBIDE MONONITRATE [Concomitant]
  12. RAMIPRIL [Concomitant]
  13. LOSARTAN POSTASSIUM [Concomitant]
  14. BENDROFLUMETHIAZIDE [Concomitant]

REACTIONS (2)
  - ANAPHYLACTIC SHOCK [None]
  - DRUG HYPERSENSITIVITY [None]
